FAERS Safety Report 5475398-6 (Version None)
Quarter: 2007Q4

REPORT INFORMATION
  Report Type: 
  Country: None (occurrence: None)
  Receive Date: 20071003
  Receipt Date: 20070924
  Transmission Date: 20080405
  Serious: Yes (Hospitalization)
  Sender: FDA-Public Use
  Company Number: PHHO2007US15559

PATIENT
  Age: 67 Year
  Sex: Male
  Weight: 121.4 kg

DRUGS (8)
  1. NATEGLINIDE [Suspect]
     Indication: GLUCOSE TOLERANCE IMPAIRED
     Dosage: LEVEL 1
     Route: 048
     Dates: start: 20020822
  2. NATEGLINIDE [Suspect]
     Dosage: LEVEL 2
     Route: 048
     Dates: end: 20070917
  3. NATEGLINIDE [Suspect]
     Dosage: LEVEL 2
     Route: 048
     Dates: start: 20070920
  4. VALSARTAN [Suspect]
     Indication: CARDIOVASCULAR DISORDER
     Dosage: LEVEL 1
     Route: 048
     Dates: start: 20020822, end: 20070917
  5. VALSARTAN [Suspect]
     Dosage: LEVEL 1
     Route: 048
     Dates: start: 20070920
  6. METOPROLOL [Suspect]
     Indication: HYPERTENSION
     Dosage: 150 MG, BID
     Route: 048
     Dates: start: 20030324
  7. METOPROLOL [Suspect]
     Route: 048
  8. LASIX [Concomitant]

REACTIONS (11)
  - ARRHYTHMIA [None]
  - CARDIAC ABLATION [None]
  - DISEASE PROGRESSION [None]
  - DIZZINESS [None]
  - EXTRASYSTOLES [None]
  - IMPLANTABLE DEFIBRILLATOR INSERTION [None]
  - PALPITATIONS [None]
  - PRESYNCOPE [None]
  - SINUS BRADYCARDIA [None]
  - VENTRICULAR EXTRASYSTOLES [None]
  - VENTRICULAR TACHYCARDIA [None]
